FAERS Safety Report 14347380 (Version 1)
Quarter: 2018Q1

REPORT INFORMATION
  Report Type: Spontaneous
  Country: US (occurrence: US)
  Receive Date: 20180103
  Receipt Date: 20180103
  Transmission Date: 20180509
  Serious: Yes (Other)
  Sender: FDA-Public Use
  Company Number: None

PATIENT
  Age: 67 Year
  Sex: Female
  Weight: 64.41 kg

DRUGS (12)
  1. BOTOX [Suspect]
     Active Substance: ONABOTULINUMTOXINA
     Indication: MIGRAINE
     Dates: start: 20171213
  2. COLLAGEN [Concomitant]
     Active Substance: COLLAGEN
  3. VITAMIN C [Concomitant]
     Active Substance: ASCORBIC ACID
  4. PROPRANOLOL [Concomitant]
     Active Substance: PROPRANOLOL HYDROCHLORIDE
  5. PRAVASTATIN SODIUM. [Concomitant]
     Active Substance: PRAVASTATIN SODIUM
  6. VITAMIN E [Concomitant]
     Active Substance: .ALPHA.-TOCOPHEROL
  7. FISH OIL [Concomitant]
     Active Substance: FISH OIL
  8. CALCUM [Concomitant]
  9. IRON [Concomitant]
     Active Substance: IRON
  10. MAGNASUM [Concomitant]
  11. GINSENG [Concomitant]
     Active Substance: ASIAN GINSENG
  12. VITAMIN B [Concomitant]
     Active Substance: VITAMIN B

REACTIONS (5)
  - Back pain [None]
  - Neck pain [None]
  - Head discomfort [None]
  - Eyelid ptosis [None]
  - Dyspnoea [None]

NARRATIVE: CASE EVENT DATE: 20171213
